FAERS Safety Report 10120702 (Version 1)
Quarter: 2014Q2

REPORT INFORMATION
  Report Type: Spontaneous
  Country: NL (occurrence: NL)
  Receive Date: 20140425
  Receipt Date: 20140425
  Transmission Date: 20141212
  Serious: Yes (Life-Threatening)
  Sender: FDA-Public Use
  Company Number: NL-TEVA-476701ISR

PATIENT
  Age: 16 Year
  Sex: Female
  Weight: 50 kg

DRUGS (2)
  1. FLUOXETINE [Suspect]
     Indication: MUTISM
     Dosage: ONCE DAILY ONE PIECE
     Route: 048
     Dates: start: 20130905, end: 20140215
  2. PROPRANOLOL [Interacting]
     Indication: PROPHYLAXIS
     Dosage: ONCE DAILY ONE PIECE
     Route: 048
     Dates: start: 20131215, end: 20131221

REACTIONS (9)
  - Suicidal ideation [Recovered/Resolved with Sequelae]
  - Insomnia [Recovered/Resolved with Sequelae]
  - Vision blurred [Not Recovered/Not Resolved]
  - Irritability [Not Recovered/Not Resolved]
  - Drug interaction [Recovered/Resolved with Sequelae]
  - Bruxism [Recovered/Resolved with Sequelae]
  - Depression [Not Recovered/Not Resolved]
  - Anxiety [Recovered/Resolved with Sequelae]
  - Headache [Recovered/Resolved with Sequelae]
